FAERS Safety Report 9251694 (Version 1)
Quarter: 2013Q2

REPORT INFORMATION
  Report Type: Report from Study
  Country: DE (occurrence: DE)
  Receive Date: 20130424
  Receipt Date: 20130424
  Transmission Date: 20140414
  Serious: Yes (Hospitalization)
  Sender: FDA-Public Use
  Company Number: PHHY2013DE039317

PATIENT
  Sex: Female
  Weight: 85 kg

DRUGS (2)
  1. GLIVEC [Suspect]
     Indication: CHRONIC MYELOID LEUKAEMIA
     Route: 048
     Dates: start: 20051028, end: 20090929
  2. L-THYROXIN [Concomitant]
     Dosage: UNK UKN, UNK
     Dates: start: 20050624

REACTIONS (2)
  - Cerebral haemorrhage [Recovered/Resolved]
  - Drug intolerance [Unknown]
